FAERS Safety Report 6433376-4 (Version None)
Quarter: 2009Q4

REPORT INFORMATION
  Report Type: 
  Country: None (occurrence: None)
  Receive Date: 20091109
  Receipt Date: 20091104
  Transmission Date: 20100525
  Serious: Yes (Hospitalization)
  Sender: FDA-Public Use
  Company Number: CY-MERCK-0911USA00792

PATIENT
  Age: 61 Year
  Sex: Male

DRUGS (2)
  1. CANCIDAS [Suspect]
     Indication: INFECTION
     Route: 042
     Dates: start: 20091001, end: 20091101
  2. VANCOMYCIN [Concomitant]
     Indication: INFECTION
     Route: 065

REACTIONS (2)
  - BALANCE DISORDER [None]
  - VERTIGO [None]
